FAERS Safety Report 4957154-8 (Version None)
Quarter: 2006Q1

REPORT INFORMATION
  Report Type: 
  Country: None (occurrence: None)
  Receive Date: 20060329
  Receipt Date: 20051012
  Transmission Date: 20060701
  Serious: Yes (Hospitalization, Other)
  Sender: FDA-Public Use
  Company Number: US-MERCK-0510USA06858

PATIENT
  Age: 56 Year
  Sex: Male
  Weight: 124 kg

DRUGS (2)
  1. VIOXX [Suspect]
     Indication: HEADACHE
     Route: 048
     Dates: start: 20001218, end: 20040930
  2. VIOXX [Suspect]
     Indication: NECK INJURY
     Route: 048
     Dates: start: 20001218, end: 20040930

REACTIONS (6)
  - ANEURYSM [None]
  - CARDIAC DISORDER [None]
  - CHEST PAIN [None]
  - CORONARY ARTERY DISEASE [None]
  - COUGH [None]
  - MYOCARDIAL INFARCTION [None]
